FAERS Safety Report 19186213 (Version 1)
Quarter: 2021Q2

REPORT INFORMATION
  Report Type: Spontaneous
  Country: US (occurrence: US)
  Receive Date: 20210427
  Receipt Date: 20210427
  Transmission Date: 20210717
  Serious: Yes (Other)
  Sender: FDA-Public Use
  Company Number: US-RIGEL PHARMACEUTICALS, INC.-2021FOS000235

PATIENT
  Sex: Female

DRUGS (1)
  1. TAVALISSE [Suspect]
     Active Substance: FOSTAMATINIB
     Indication: IMMUNE THROMBOCYTOPENIA
     Dosage: 150 MG, BID
     Route: 048

REACTIONS (7)
  - Pulmonary embolism [Unknown]
  - Pneumonia [Unknown]
  - Gait inability [Unknown]
  - Staphylococcal infection [Unknown]
  - COVID-19 [Unknown]
  - Gastrostomy [Unknown]
  - Dysstasia [Unknown]
